FAERS Safety Report 13081919 (Version 2)
Quarter: 2017Q1

REPORT INFORMATION
  Report Type: Report from Study
  Country: PK (occurrence: PK)
  Receive Date: 20170103
  Receipt Date: 20170214
  Transmission Date: 20170428
  Serious: Yes (Death, Other)
  Sender: FDA-Public Use
  Company Number: PHHY2017PK000484

PATIENT
  Sex: Male
  Weight: 51 kg

DRUGS (1)
  1. AFINITOR [Suspect]
     Active Substance: EVEROLIMUS
     Indication: RENAL CELL CARCINOMA
     Dosage: 10 MG, QD
     Route: 048
     Dates: start: 20161121

REACTIONS (16)
  - Fall [Fatal]
  - Swollen tongue [Unknown]
  - Choking [Unknown]
  - Cough [Unknown]
  - Syncope [Fatal]
  - Stomatitis [Fatal]
  - Upper airway obstruction [Unknown]
  - Blood urea increased [Unknown]
  - Blood urine present [Unknown]
  - Haemoglobin decreased [Unknown]
  - Pruritus [Unknown]
  - Oropharyngeal swelling [Unknown]
  - Sensation of foreign body [Unknown]
  - Fixed drug eruption [Unknown]
  - Epistaxis [Fatal]
  - Sneezing [Unknown]
